FAERS Safety Report 17068344 (Version 5)
Quarter: 2020Q1

REPORT INFORMATION
  Report Type: Report from Study
  Country: US (occurrence: US)
  Receive Date: 20191123
  Receipt Date: 20200331
  Transmission Date: 20200409
  Serious: Yes (Other)
  Sender: FDA-Public Use
  Company Number: NVSC2019US045843

PATIENT
  Sex: Female

DRUGS (2)
  1. COSENTYX [Suspect]
     Active Substance: SECUKINUMAB
     Indication: PSORIATIC ARTHROPATHY
     Dosage: 300 MG, QMO
     Route: 058
  2. COSENTYX [Suspect]
     Active Substance: SECUKINUMAB
     Indication: PSORIASIS
     Dosage: UNK UNK, QW
     Route: 058
     Dates: start: 20191007

REACTIONS (4)
  - Upper respiratory tract infection [Unknown]
  - Respiratory tract infection [Unknown]
  - Musculoskeletal stiffness [Unknown]
  - Injection site haemorrhage [Recovered/Resolved]
